FAERS Safety Report 20493233 (Version 2)
Quarter: 2023Q2

REPORT INFORMATION
  Report Type: Spontaneous
  Country: US (occurrence: US)
  Receive Date: 20220220
  Receipt Date: 20230516
  Transmission Date: 20230722
  Serious: Yes (Other)
  Sender: FDA-Public Use
  Company Number: US-TEVA-2022-US-2008015

PATIENT
  Age: 78 Year
  Sex: Female
  Weight: 56.7 kg

DRUGS (1)
  1. GRANIX [Suspect]
     Active Substance: TBO-FILGRASTIM
     Indication: Product used for unknown indication
     Dosage: 300/0.5 MCG/ML
     Route: 065

REACTIONS (1)
  - Weight decreased [Unknown]
